FAERS Safety Report 20187360 (Version 1)
Quarter: 2021Q4

REPORT INFORMATION
  Report Type: Spontaneous
  Country: US (occurrence: US)
  Receive Date: 20211215
  Receipt Date: 20211215
  Transmission Date: 20220303
  Serious: Yes (Disabling, Other)
  Sender: FDA-Public Use
  Company Number: US-GLAXOSMITHKLINE-US2021AMR252589

PATIENT
  Age: 35 Year
  Sex: Female

DRUGS (5)
  1. VALTREX [Suspect]
     Active Substance: VALACYCLOVIR HYDROCHLORIDE
     Indication: Antiviral treatment
     Dosage: UNK
  2. ALEMTUZUMAB [Suspect]
     Active Substance: ALEMTUZUMAB
     Indication: Multiple sclerosis
     Dosage: UNK UNK, QD, 12 MG/1.2ML, QD, CONCENTRATE FOR SOLUTION FOR INFUSION.
     Route: 041
     Dates: start: 20180618, end: 20180622
  3. SOLU-MEDROL [Concomitant]
     Active Substance: METHYLPREDNISOLONE SODIUM SUCCINATE
     Indication: Product used for unknown indication
     Dosage: UNK
     Dates: start: 20180618, end: 20180622
  4. Diphenhydramine + Magnesium Salicylate [Concomitant]
     Indication: Product used for unknown indication
     Dosage: UNK
  5. BENADRYL [Concomitant]
     Active Substance: DIPHENHYDRAMINE HYDROCHLORIDE
     Indication: Product used for unknown indication
     Dosage: UNK
     Dates: start: 20180618, end: 20180622

REACTIONS (20)
  - Hyperthyroidism [Unknown]
  - Epstein-Barr virus infection [Unknown]
  - Blood thyroid stimulating hormone decreased [Unknown]
  - Fatigue [Unknown]
  - Lethargy [Unknown]
  - Rash papular [Unknown]
  - Thyroid function test abnormal [Unknown]
  - Urticaria [Unknown]
  - Urinary tract infection [Unknown]
  - Blood pressure increased [Unknown]
  - Mobility decreased [Unknown]
  - Body temperature fluctuation [Unknown]
  - Mental fatigue [Unknown]
  - Feeling abnormal [Unknown]
  - Hyperhidrosis [Unknown]
  - Pain [Unknown]
  - Hepatitis A antibody positive [Unknown]
  - Headache [Unknown]
  - Dizziness [Unknown]
  - Heart rate increased [Unknown]

NARRATIVE: CASE EVENT DATE: 20180618
